FAERS Safety Report 6536899-2 (Version None)
Quarter: 2010Q1

REPORT INFORMATION
  Report Type: 
  Country: None (occurrence: None)
  Receive Date: 20100106
  Receipt Date: 20091222
  Transmission Date: 20100710
  Serious: Yes (Congenital Anomaly, Other)
  Sender: FDA-Public Use
  Company Number: AUR-APL-2010-00008

PATIENT
  Sex: Male
  Weight: 2.5 kg

DRUGS (7)
  1. PAROXETINE HCL [Suspect]
     Indication: PANIC DISORDER
     Dosage: TRANSPLACENT
     Route: 064
  2. TRAZODONE HCL FILM-COATED TABLET [Suspect]
     Indication: PANIC DISORDER
     Dosage: TRANSPLACENT
     Route: 064
  3. BROMAZEPAM TABLET [Suspect]
     Indication: PANIC DISORDER
     Dosage: TRANSPLACENT
     Route: 064
  4. AMOXAPINE [Suspect]
     Indication: PANIC DISORDER
     Dosage: TRANSPLACENT
     Route: 064
  5. NITRAZEPAM [Suspect]
     Indication: PANIC DISORDER
     Dosage: TRANSPLACENT
     Route: 064
  6. ETIZOLAM [Suspect]
     Indication: PANIC DISORDER
     Dosage: TRANSPLACENT
     Route: 064
  7. AMITRIPTYLINE [Suspect]
     Indication: PANIC DISORDER
     Dosage: TRANSPLACENT
     Route: 064

REACTIONS (3)
  - FEEDING DISORDER NEONATAL [None]
  - IRRITABILITY [None]
  - MATERNAL DRUGS AFFECTING FOETUS [None]
